FAERS Safety Report 6317072-X (Version None)
Quarter: 2009Q3

REPORT INFORMATION
  Report Type: 
  Country: None (occurrence: None)
  Receive Date: 20090820
  Receipt Date: 20090811
  Transmission Date: 20100115
  Serious: Yes (Other)
  Sender: FDA-Public Use
  Company Number: AT-PFIZER INC-2009254001

PATIENT
  Age: 26 Year

DRUGS (3)
  1. ZIPRASIDONE HCL [Suspect]
     Indication: SCHIZOPHRENIA, PARANOID TYPE
     Dosage: 160 MG, 1X/DAY
  2. CHLORPROTHIXEN ^NEURAXPHARM^ [Suspect]
     Dosage: 50 MG, 2X/DAY
  3. LORAZEPAM [Concomitant]
     Dosage: 3 MG, 1X/DAY

REACTIONS (4)
  - CONVULSION [None]
  - HYPONATRAEMIA [None]
  - RHABDOMYOLYSIS [None]
  - SUICIDE ATTEMPT [None]
